FAERS Safety Report 8069945-8 (Version None)
Quarter: 2012Q1

REPORT INFORMATION
  Report Type: 
  Country: None (occurrence: None)
  Receive Date: 20120125
  Receipt Date: 20120110
  Transmission Date: 20120608
  Serious: Yes (Hospitalization)
  Sender: FDA-Public Use
  Company Number: FR-CELGENEUS-056-21880-11112631

PATIENT
  Sex: Male
  Weight: 93 kg

DRUGS (9)
  1. DEXAMETHASONE TAB [Suspect]
     Dosage: 5.7143 MILLIGRAM
     Route: 048
     Dates: start: 20100308, end: 20100627
  2. REVLIMID [Suspect]
     Indication: MULTIPLE MYELOMA
     Dosage: 25 MILLIGRAM
     Route: 048
     Dates: start: 20100308, end: 20100627
  3. DEXAMETHASONE TAB [Suspect]
     Dosage: 40 MILLIGRAM
     Route: 065
  4. PREVISCAN [Concomitant]
     Indication: THROMBOSIS PROPHYLAXIS
     Dosage: 10 MILLIGRAM
     Route: 048
  5. CLASTOBAN [Concomitant]
     Dosage: 1600 MILLIGRAM
     Route: 048
     Dates: start: 20100308, end: 20100627
  6. VELCADE [Concomitant]
     Indication: MULTIPLE MYELOMA
     Dosage: 1.3 MILLIGRAM/SQ. METER
     Route: 065
  7. ZOMETA [Concomitant]
     Indication: MULTIPLE MYELOMA
     Dosage: 4 MILLIGRAM
     Route: 065
  8. COLCHICINE [Concomitant]
     Route: 065
  9. VALACYCLOVIR HYDROCHLORIDE [Concomitant]
     Indication: INFECTION PROPHYLAXIS
     Dosage: 1000 MILLIGRAM
     Route: 048
     Dates: start: 20090514

REACTIONS (6)
  - INTERNATIONAL NORMALISED RATIO DECREASED [None]
  - GOUT [None]
  - MULTIPLE DRUG OVERDOSE [None]
  - RENAL FAILURE [None]
  - OVERDOSE [None]
  - GENERAL PHYSICAL HEALTH DETERIORATION [None]
